FAERS Safety Report 6010520-4 (Version None)
Quarter: 2008Q4

REPORT INFORMATION
  Report Type: 
  Country: None (occurrence: None)
  Receive Date: 20081218
  Receipt Date: 20081209
  Transmission Date: 20090506
  Serious: Yes (Hospitalization)
  Sender: FDA-Public Use
  Company Number: JP-ASTRAZENECA-2008SE05699

PATIENT
  Age: 74 Year
  Sex: Male

DRUGS (9)
  1. BLOPRESS [Suspect]
     Indication: HYPERTENSION
     Route: 048
     Dates: start: 20050610, end: 20081128
  2. AMLODIPINE [Concomitant]
     Route: 048
  3. CEFAMEZIN [Concomitant]
     Route: 042
  4. PREDOPA [Concomitant]
     Route: 042
  5. PENTAZOCINE LACTATE [Concomitant]
     Route: 042
  6. AUZEI [Concomitant]
     Route: 042
  7. CEFLONIC [Concomitant]
     Route: 042
  8. UROKINASE [Concomitant]
     Route: 042
  9. HEPARIN [Concomitant]
     Route: 042

REACTIONS (1)
  - INTERSTITIAL LUNG DISEASE [None]
